FAERS Safety Report 10438911 (Version 2)
Quarter: 2014Q3

REPORT INFORMATION
  Report Type: Spontaneous
  Country: FR (occurrence: None)
  Receive Date: 20140904
  Receipt Date: 20140918
  Transmission Date: 20150326
  Serious: Yes (Other)
  Sender: FDA-Public Use
  Company Number: CLINIGEN-003429

PATIENT
  Age: 49 Year
  Sex: Female

DRUGS (6)
  1. WELLVONE [Suspect]
     Active Substance: ATOVAQUONE
     Dates: start: 20140623, end: 20140702
  2. FOSCAVIR [Suspect]
     Active Substance: FOSCARNET SODIUM
     Indication: CYTOMEGALOVIRUS INFECTION
     Dosage: NOT OTHERWISE SPECIFIED
     Route: 042
     Dates: start: 20130623
  3. AMBISOME [Suspect]
     Active Substance: AMPHOTERICIN B
     Dosage: NOT OTHERWISE SPECIFIED
     Route: 042
     Dates: start: 20140606
  4. SOLU-MEDROL [Suspect]
     Active Substance: METHYLPREDNISOLONE SODIUM SUCCINATE
  5. LEUKOTAC [Suspect]
     Active Substance: INOLIMOMAB
  6. CELLCEPT [Suspect]
     Active Substance: MYCOPHENOLATE MOFETIL\MYCOPHENOLATE MOFETIL HYDROCHLORIDE
     Dates: start: 201406

REACTIONS (1)
  - Stomatitis [None]

NARRATIVE: CASE EVENT DATE: 20140703
